FAERS Safety Report 8015785-5 (Version None)
Quarter: 2011Q4

REPORT INFORMATION
  Report Type: 
  Country: None (occurrence: None)
  Receive Date: 20111230
  Receipt Date: 20111219
  Transmission Date: 20120403
  Serious: Yes (Death)
  Sender: FDA-Public Use
  Company Number: ES-CELGENEUS-144-50794-11120880

PATIENT
  Age: 78 Year
  Sex: Male

DRUGS (3)
  1. VIDAZA [Suspect]
     Dosage: 75 MILLIGRAM
     Route: 050
     Dates: start: 20110404, end: 20110802
  2. RED BLOOD CELLS [Concomitant]
     Dosage: .1333 OTHER
     Route: 065
     Dates: start: 20110401, end: 20110801
  3. PLATELETS [Concomitant]
     Dosage: .0667 OTHER
     Route: 065
     Dates: start: 20110401, end: 20110801

REACTIONS (2)
  - MYELODYSPLASTIC SYNDROME [None]
  - NEOPLASM PROGRESSION [None]
